FAERS Safety Report 11357576 (Version 1)
Quarter: 2015Q3

REPORT INFORMATION
  Report Type: Spontaneous
  Country: US (occurrence: US)
  Receive Date: 20150803
  Receipt Date: 20150803
  Transmission Date: 20151125
  Serious: No
  Sender: FDA-Public Use
  Company Number: US-ELI_LILLY_AND_COMPANY-US201203008904

PATIENT
  Age: 50 Year
  Sex: Female
  Weight: 38.55 kg

DRUGS (2)
  1. REMERON [Concomitant]
     Active Substance: MIRTAZAPINE
     Dosage: UNK
     Dates: start: 201107
  2. ZYPREXA ZYDIS [Suspect]
     Active Substance: OLANZAPINE
     Indication: MAJOR DEPRESSION
     Dosage: 2.5 MG, QD
     Dates: start: 201107

REACTIONS (7)
  - Flatulence [Unknown]
  - Faecal incontinence [Unknown]
  - Diarrhoea [Unknown]
  - Emotional distress [Unknown]
  - Hyperphagia [Unknown]
  - Weight increased [Unknown]
  - Wrong technique in product usage process [Not Recovered/Not Resolved]

NARRATIVE: CASE EVENT DATE: 201107
